FAERS Safety Report 7238285-9 (Version None)
Quarter: 2011Q1

REPORT INFORMATION
  Report Type: 
  Country: None (occurrence: None)
  Receive Date: 20110121
  Receipt Date: 20110112
  Transmission Date: 20110831
  Serious: Yes (Other)
  Sender: FDA-Public Use
  Company Number: JP-JNJFOC-20110104012

PATIENT
  Age: 50 Year
  Sex: Male
  Weight: 64 kg

DRUGS (15)
  1. REMICADE [Suspect]
     Route: 042
  2. REMICADE [Suspect]
     Route: 042
  3. NORVASC [Concomitant]
     Route: 048
  4. LOXONIN [Concomitant]
     Indication: PUSTULAR PSORIASIS
     Route: 048
  5. REMICADE [Suspect]
     Route: 042
  6. ETRETINATE [Concomitant]
     Indication: PUSTULAR PSORIASIS
     Route: 048
  7. REMICADE [Suspect]
     Indication: PUSTULAR PSORIASIS
     Route: 042
  8. REMICADE [Suspect]
     Route: 042
  9. CALONAL [Concomitant]
     Indication: PROPHYLAXIS
     Route: 048
  10. BLOPRESS [Concomitant]
     Indication: HYPERTENSION
     Route: 048
  11. ALLEGRA [Concomitant]
     Indication: PROPHYLAXIS
     Route: 048
  12. PROTOPIC [Concomitant]
     Indication: PUSTULAR PSORIASIS
  13. WHITE PETROLATUM [Concomitant]
     Indication: PUSTULAR PSORIASIS
  14. NORVASC [Concomitant]
     Indication: HYPERTENSION
     Route: 048
  15. MYSER [Concomitant]
     Indication: PUSTULAR PSORIASIS

REACTIONS (1)
  - DUODENAL ULCER [None]
